FAERS Safety Report 9125974 (Version 1)
Quarter: 2013Q1

REPORT INFORMATION
  Report Type: Spontaneous
  Country: US (occurrence: US)
  Receive Date: 20130117
  Receipt Date: 20130117
  Transmission Date: 20140127
  Serious: Yes (Other)
  Sender: FDA-Public Use
  Company Number: US-RB-047503-12

PATIENT
  Age: 50 None
  Sex: Female
  Weight: 50.91 kg

DRUGS (4)
  1. DELSYM [Suspect]
     Indication: PRODUCT USED FOR UNKNOWN INDICATION
     Dosage: TOOK THE DOSE AT 8:45PM
     Route: 048
     Dates: start: 20121204
  2. Z-PACK [Concomitant]
     Indication: PRODUCT USED FOR UNKNOWN INDICATION
  3. ESTROGEN [Concomitant]
     Indication: PRODUCT USED FOR UNKNOWN INDICATION
  4. HALLS COUGH DROPS [Concomitant]
     Indication: PRODUCT USED FOR UNKNOWN INDICATION

REACTIONS (11)
  - Loss of consciousness [Recovered/Resolved]
  - Hypotension [Recovered/Resolved]
  - Upper respiratory tract infection [Recovered/Resolved]
  - Disorientation [Recovered/Resolved]
  - Feeling abnormal [Unknown]
  - Gait disturbance [Unknown]
  - Dizziness [Recovered/Resolved]
  - Nausea [Recovered/Resolved]
  - Contusion [Recovering/Resolving]
  - Musculoskeletal pain [Recovering/Resolving]
  - Musculoskeletal pain [Recovering/Resolving]
